FAERS Safety Report 9988169 (Version 3)
Quarter: 2014Q1

REPORT INFORMATION
  Report Type: Spontaneous
  Country: FR (occurrence: FR)
  Receive Date: 20140309
  Receipt Date: 20140319
  Transmission Date: 20141002
  Serious: Yes (Other)
  Sender: FDA-Public Use
  Company Number: FR-US-EMD SERONO, INC.-7256585

PATIENT
  Age: 29 Year
  Sex: Female

DRUGS (2)
  1. REBIF [Suspect]
     Indication: MULTIPLE SCLEROSIS
     Route: 058
     Dates: start: 201207
  2. IRON [Concomitant]
     Indication: MINERAL SUPPLEMENTATION

REACTIONS (5)
  - Postpartum haemorrhage [Recovered/Resolved]
  - Abdominal pain [Recovered/Resolved]
  - Influenza like illness [Recovering/Resolving]
  - Normal newborn [Recovered/Resolved]
  - Maternal exposure during pregnancy [Recovered/Resolved]
